FAERS Safety Report 17125166 (Version 3)
Quarter: 2020Q2

REPORT INFORMATION
  Report Type: Spontaneous
  Country: DE (occurrence: DE)
  Receive Date: 20191206
  Receipt Date: 20200511
  Transmission Date: 20200713
  Serious: Yes (Other)
  Sender: FDA-Public Use
  Company Number: DE-ROCHE-2486094

PATIENT
  Age: 68 Year
  Sex: Male
  Weight: 65 kg

DRUGS (6)
  1. ONDANSETRON [Concomitant]
     Active Substance: ONDANSETRON
     Indication: CHEMOTHERAPY
     Dosage: IN PARALLEL TO MABTHERA, 6 TIMES EVERY 4 WEEKS
     Route: 065
     Dates: start: 201906, end: 201911
  2. TAVEGIL [CLEMASTINE] [Concomitant]
     Active Substance: CLEMASTINE
     Indication: CHEMOTHERAPY
     Dosage: IN PARALLEL TO MABTHERA, 6 TIMES EVERY 4 WEEKS
     Route: 065
     Dates: start: 201906, end: 201911
  3. PARACETAMOL [Concomitant]
     Active Substance: ACETAMINOPHEN
     Indication: CHEMOTHERAPY
     Dosage: IN PARALLEL TO MABTHERA, 6 TIMES EVERY 4 WEEKS
     Route: 065
     Dates: start: 201906, end: 201911
  4. PREDNISONE. [Concomitant]
     Active Substance: PREDNISONE
     Indication: CHEMOTHERAPY
     Dosage: IN PARALLEL TO MABTHERA, 6 TIMES EVERY 4 WEEKS
     Route: 065
     Dates: start: 201906, end: 201911
  5. BENDAMUSTINE [Suspect]
     Active Substance: BENDAMUSTINE
     Indication: WALDENSTROM^S MACROGLOBULINAEMIA
     Dosage: 6 TIMES EVERY 4 WEEKS
     Route: 065
     Dates: start: 201906, end: 201911
  6. MABTHERA [Suspect]
     Active Substance: RITUXIMAB
     Indication: WALDENSTROM^S MACROGLOBULINAEMIA
     Dosage: 6 TIMES EVERY 4 WEEKS.
     Route: 042
     Dates: start: 201906, end: 201911

REACTIONS (5)
  - Off label use [Unknown]
  - Skin disorder [Not Recovered/Not Resolved]
  - Muscle rupture [Recovered/Resolved]
  - Haemorrhage [Unknown]
  - Intentional product use issue [Unknown]

NARRATIVE: CASE EVENT DATE: 201910
